FAERS Safety Report 25894128 (Version 1)
Quarter: 2025Q4

REPORT INFORMATION
  Report Type: Spontaneous
  Country: EU (occurrence: None)
  Receive Date: 20251008
  Receipt Date: 20251008
  Transmission Date: 20260117
  Serious: Yes (Other)
  Sender: ENDO
  Company Number: EU-ENDO USA, INC.-2025-002066

PATIENT
  Age: 77 Year
  Sex: Female

DRUGS (2)
  1. CLINDAMYCIN PHOSPHATE [Suspect]
     Active Substance: CLINDAMYCIN PHOSPHATE
     Indication: Infected bite
     Dosage: UNK UNKNOWN, UNKNOWN (5 DAYS PRIOR TO ADMISSION)
     Route: 065
  2. CEFDITOREN [Suspect]
     Active Substance: CEFDITOREN
     Indication: Infected bite
     Dosage: UNK UNKNOWN, UNKNOWN (7 DAYS PRIOR TO ADMISSION)
     Route: 065

REACTIONS (2)
  - Acute generalised exanthematous pustulosis [Recovered/Resolved with Sequelae]
  - Off label use [Recovered/Resolved]
